FAERS Safety Report 17390161 (Version 1)
Quarter: 2020Q1

REPORT INFORMATION
  Report Type: Spontaneous
  Country: US (occurrence: US)
  Receive Date: 20200123
  Receipt Date: 20200123
  Transmission Date: 20200409
  Serious: Yes (Hospitalization)
  Sender: FDA-Public Use
  Company Number: None

PATIENT
  Age: 69 Year
  Sex: Male
  Weight: 85 kg

DRUGS (1)
  1. CYTARABINE. [Suspect]
     Active Substance: CYTARABINE
     Dates: end: 20191230

REACTIONS (7)
  - Skin abrasion [None]
  - Fall [None]
  - Osteophyte fracture [None]
  - Pyrexia [None]
  - Haematoma [None]
  - Neutrophil count decreased [None]
  - Neck pain [None]

NARRATIVE: CASE EVENT DATE: 20200113
